FAERS Safety Report 9788072 (Version 2)
Quarter: 2014Q1

REPORT INFORMATION
  Report Type: Spontaneous
  Country: JP (occurrence: JP)
  Receive Date: 20131230
  Receipt Date: 20140206
  Transmission Date: 20141002
  Serious: Yes (Other)
  Sender: FDA-Public Use
  Company Number: US-ASTRAZENECA-2013SE94327

PATIENT
  Age: 60 Year
  Sex: Female

DRUGS (9)
  1. BLOPRESS [Suspect]
     Indication: HYPERTENSION
     Route: 048
     Dates: start: 20071114, end: 20140107
  2. OMEPROTON [Suspect]
     Indication: GASTROOESOPHAGEAL REFLUX DISEASE
     Route: 048
     Dates: start: 20110208, end: 20121015
  3. METHOTREXATE [Suspect]
     Dosage: UNK
     Route: 048
  4. LOXONIN [Suspect]
     Indication: ARTHRALGIA
     Route: 048
     Dates: start: 20120620, end: 20140107
  5. NEXIUM [Concomitant]
     Indication: GASTROOESOPHAGEAL REFLUX DISEASE
     Route: 048
     Dates: start: 20121016, end: 20140107
  6. AMLODIPINE OD [Concomitant]
     Indication: HYPERTENSION
     Route: 048
     Dates: start: 20110617
  7. PREDNISOLONE [Concomitant]
     Route: 048
  8. SELBEX [Concomitant]
     Route: 048
  9. VOLTAREN [Concomitant]
     Route: 048

REACTIONS (1)
  - Interstitial lung disease [Not Recovered/Not Resolved]
